FAERS Safety Report 15288001 (Version 1)
Quarter: 2018Q3

REPORT INFORMATION
  Report Type: Spontaneous
  Country: US (occurrence: US)
  Receive Date: 20180817
  Receipt Date: 20180817
  Transmission Date: 20181010
  Serious: Yes (Other)
  Sender: FDA-Public Use
  Company Number: US-PFIZER INC-2018330071

PATIENT
  Sex: Female

DRUGS (4)
  1. IBUPROFEN. [Suspect]
     Active Substance: IBUPROFEN
  2. ALEVE [Suspect]
     Active Substance: NAPROXEN SODIUM
  3. ASPIRIN. [Suspect]
     Active Substance: ASPIRIN
  4. ADVIL [Suspect]
     Active Substance: IBUPROFEN

REACTIONS (1)
  - Myocardial infarction [Unknown]
